FAERS Safety Report 17312957 (Version 1)
Quarter: 2020Q1

REPORT INFORMATION
  Report Type: Spontaneous
  Country: FR (occurrence: FR)
  Receive Date: 20200124
  Receipt Date: 20200124
  Transmission Date: 20200409
  Serious: Yes (Hospitalization)
  Sender: FDA-Public Use
  Company Number: FR-TEVA-2020-FR-1171939

PATIENT
  Age: 71 Year
  Sex: Male

DRUGS (6)
  1. DEPAKOTE [Suspect]
     Active Substance: DIVALPROEX SODIUM
     Indication: WRONG PRODUCT ADMINISTERED
     Dosage: 500 MG
     Route: 048
     Dates: start: 20191219
  2. ATARAX [Suspect]
     Active Substance: HYDROXYZINE HYDROCHLORIDE
     Indication: WRONG PRODUCT ADMINISTERED
     Dosage: 25 MG
     Route: 048
     Dates: start: 20191219
  3. ABILIFY [Suspect]
     Active Substance: ARIPIPRAZOLE
     Indication: WRONG PRODUCT ADMINISTERED
     Dosage: 15 MG
     Route: 048
     Dates: start: 20191219
  4. DOLIPRANE [Suspect]
     Active Substance: ACETAMINOPHEN
     Indication: WRONG PRODUCT ADMINISTERED
     Dosage: 1000 MG
     Route: 048
     Dates: start: 20191219
  5. CHLORHYDRATE DE TRAMADOL [Suspect]
     Active Substance: TRAMADOL HYDROCHLORIDE
     Indication: WRONG PRODUCT ADMINISTERED
     Dosage: 1 DF
     Route: 048
     Dates: start: 20191219
  6. SERESTA 10 MG, COMPRIM? [Suspect]
     Active Substance: OXAZEPAM
     Indication: WRONG PRODUCT ADMINISTERED
     Dosage: 10 MG
     Route: 048
     Dates: start: 20191219

REACTIONS (3)
  - Wrong patient received product [Recovered/Resolved]
  - Oxygen saturation decreased [Recovered/Resolved]
  - Medication error [Recovered/Resolved]

NARRATIVE: CASE EVENT DATE: 20191219
